FAERS Safety Report 8255963-3 (Version None)
Quarter: 2012Q1

REPORT INFORMATION
  Report Type: 
  Country: None (occurrence: None)
  Receive Date: 20120329
  Receipt Date: 20120308
  Transmission Date: 20120608
  Serious: Yes (Other)
  Sender: FDA-Public Use
  Company Number: 2135225-2012-00033

PATIENT
  Age: 35 Year
  Sex: Female

DRUGS (1)
  1. AETOXISCLEROL TAMPONNE 0.3%, SOL'N INJECTABLE I.V. [Suspect]
     Dosage: AMPOULE PER SESS/3 MO
     Dates: start: 20101001, end: 20111001

REACTIONS (2)
  - VITREOUS DETACHMENT [None]
  - IRIDOCYCLITIS [None]
